FAERS Safety Report 14476305 (Version 1)
Quarter: 2018Q1

REPORT INFORMATION
  Report Type: Spontaneous
  Country: US (occurrence: US)
  Receive Date: 20180201
  Receipt Date: 20180201
  Transmission Date: 20180509
  Serious: No
  Sender: FDA-Public Use
  Company Number: US-SA-2017SA209267

PATIENT
  Age: 83 Year
  Sex: Female
  Weight: 68.03 kg

DRUGS (21)
  1. PRALUENT [Suspect]
     Active Substance: ALIROCUMAB
     Indication: BLOOD TRIGLYCERIDES
     Route: 058
     Dates: start: 201705
  2. BABY ASPIRIN [Concomitant]
     Active Substance: ASPIRIN
     Route: 065
  3. PRALUENT [Suspect]
     Active Substance: ALIROCUMAB
     Indication: BLOOD CHOLESTEROL INCREASED
     Route: 058
     Dates: start: 201705
  4. ALIROCUMAB PREFILLED PEN [Suspect]
     Active Substance: ALIROCUMAB
     Indication: BLOOD CHOLESTEROL INCREASED
     Dates: start: 201705
  5. LEVOTHYROXINE. [Concomitant]
     Active Substance: LEVOTHYROXINE
     Dosage: FREQUENCY: 7 TIMES A WEEK
     Route: 065
  6. PRALUENT [Suspect]
     Active Substance: ALIROCUMAB
     Indication: LOW DENSITY LIPOPROTEIN
     Route: 058
     Dates: start: 201705
  7. ALIROCUMAB PREFILLED PEN [Suspect]
     Active Substance: ALIROCUMAB
     Indication: BLOOD TRIGLYCERIDES
     Dates: start: 201705
  8. ALIROCUMAB PREFILLED PEN [Suspect]
     Active Substance: ALIROCUMAB
     Indication: HIGH DENSITY LIPOPROTEIN
     Dates: start: 201705
  9. ALPRAZOLAM. [Concomitant]
     Active Substance: ALPRAZOLAM
     Route: 065
  10. TYLENOL ARTHRITIS PAIN [Concomitant]
     Active Substance: ACETAMINOPHEN
     Route: 065
  11. PRALUENT [Suspect]
     Active Substance: ALIROCUMAB
     Indication: HIGH DENSITY LIPOPROTEIN
     Route: 058
     Dates: start: 201705
  12. WELCHOL [Concomitant]
     Active Substance: COLESEVELAM HYDROCHLORIDE
     Route: 065
  13. AMLODIPINE [Concomitant]
     Active Substance: AMLODIPINE BESYLATE
     Route: 065
  14. VITAMIN D [Concomitant]
     Active Substance: CHOLECALCIFEROL
     Route: 065
  15. COQ10 [Concomitant]
     Active Substance: UBIDECARENONE
     Route: 065
  16. ALIROCUMAB PREFILLED PEN [Suspect]
     Active Substance: ALIROCUMAB
     Indication: LOW DENSITY LIPOPROTEIN
     Dates: start: 201705
  17. CALCIUM [Concomitant]
     Active Substance: CALCIUM
     Route: 065
  18. VITAMIN B12 [Concomitant]
     Active Substance: CYANOCOBALAMIN
     Route: 065
  19. OMEPRAZOLE. [Concomitant]
     Active Substance: OMEPRAZOLE
     Route: 065
  20. TIMOLOL. [Concomitant]
     Active Substance: TIMOLOL
     Route: 065
  21. ALENDRONATE [Concomitant]
     Active Substance: ALENDRONATE SODIUM
     Route: 065

REACTIONS (5)
  - Erythema of eyelid [Not Recovered/Not Resolved]
  - Pruritus [Not Recovered/Not Resolved]
  - Dermatitis contact [Not Recovered/Not Resolved]
  - Ocular hyperaemia [Not Recovered/Not Resolved]
  - Eye swelling [Not Recovered/Not Resolved]

NARRATIVE: CASE EVENT DATE: 201709
